FAERS Safety Report 8201928-7 (Version None)
Quarter: 2012Q1

REPORT INFORMATION
  Report Type: 
  Country: None (occurrence: None)
  Receive Date: 20120227
  Receipt Date: 20111110
  Transmission Date: 20120608
  Serious: No
  Sender: FDA-Public Use
  Company Number: 339382

PATIENT
  Age: 73 Year
  Sex: Female

DRUGS (2)
  1. HUMALIN (INSULIN) [Suspect]
     Indication: DIABETES MELLITUS
     Dosage: 54 U, UNK, SUBCUTANEOUS
     Route: 058
  2. VICTOZA [Suspect]
     Indication: PRODUCT USED FOR UNKNOWN INDICATION
     Dosage: UNK UNK, QD, SUBCUTANEOUS
     Route: 058

REACTIONS (2)
  - INJECTION SITE PAIN [None]
  - BLOOD GLUCOSE DECREASED [None]
